FAERS Safety Report 9646801 (Version 1)
Quarter: 2013Q4

REPORT INFORMATION
  Report Type: Spontaneous
  Country: US (occurrence: US)
  Receive Date: 20131027
  Receipt Date: 20131027
  Transmission Date: 20140711
  Serious: No
  Sender: FDA-Public Use
  Company Number: US-PURDUE-USA-2013-0102948

PATIENT
  Sex: Female

DRUGS (2)
  1. OXYCONTIN (NDA 22-272) [Suspect]
     Indication: PAIN
     Dosage: 50 MG, UNK
     Route: 048
  2. NAPROXEN [Concomitant]
     Indication: PAIN

REACTIONS (3)
  - Neuralgia [Unknown]
  - Wrong technique in drug usage process [Unknown]
  - Malaise [Unknown]
